FAERS Safety Report 19707475 (Version 1)
Quarter: 2021Q3

REPORT INFORMATION
  Report Type: Spontaneous
  Country: US (occurrence: US)
  Receive Date: 20210816
  Receipt Date: 20210816
  Transmission Date: 20211014
  Serious: No
  Sender: FDA-Public Use
  Company Number: None

PATIENT
  Age: 57 Year
  Sex: Female

DRUGS (1)
  1. HUMIRA [Suspect]
     Active Substance: ADALIMUMAB
     Dosage: OTHER
     Route: 058
     Dates: start: 202006

REACTIONS (3)
  - Gastrointestinal obstruction [None]
  - Crohn^s disease [None]
  - Gastrointestinal inflammation [None]

NARRATIVE: CASE EVENT DATE: 20210816
